FAERS Safety Report 17828584 (Version 1)
Quarter: 2020Q2

REPORT INFORMATION
  Report Type: Spontaneous
  Country: IE (occurrence: IE)
  Receive Date: 20200527
  Receipt Date: 20200527
  Transmission Date: 20200714
  Serious: Yes (Death, Hospitalization)
  Sender: FDA-Public Use
  Company Number: IE-ROCHE-2607359

PATIENT
  Age: 68 Year
  Sex: Female
  Weight: 66 kg

DRUGS (15)
  1. IMODIUM [Concomitant]
     Active Substance: LOPERAMIDE HYDROCHLORIDE
     Dosage: 2 TID PRN
     Route: 065
     Dates: start: 20190408
  2. PHOSPHATE SANDOZ [Concomitant]
     Active Substance: SODIUM PHOSPHATE, MONOBASIC, ANHYDROUS
     Dosage: 500 MG PRN
     Route: 065
     Dates: start: 20190408
  3. QUININE SULPHATE [Concomitant]
     Active Substance: QUININE SULFATE
     Dosage: 1 NOCTE
     Route: 065
     Dates: start: 20190408
  4. QUESTRAN [Concomitant]
     Active Substance: CHOLESTYRAMINE
     Dosage: 1 DAILY
     Route: 065
     Dates: start: 20190408
  5. NU-SEALS [Concomitant]
     Dosage: 1 DAILY
     Route: 065
     Dates: start: 20190408
  6. KEPPRA [Concomitant]
     Active Substance: LEVETIRACETAM
     Dosage: 1BD
     Route: 065
     Dates: start: 20190408
  7. ESOMEPRAZOLE. [Concomitant]
     Active Substance: ESOMEPRAZOLE MAGNESIUM
     Dosage: 1 IN THE EVENING
     Route: 065
     Dates: start: 20190408
  8. COMBIVENT [Concomitant]
     Active Substance: ALBUTEROL SULFATE\IPRATROPIUM BROMIDE
     Dosage: 0.5MG/2.5 MG QID/PRN
     Route: 065
     Dates: start: 20190408
  9. LYRICA [Concomitant]
     Active Substance: PREGABALIN
     Dosage: 1 NOCTE
     Route: 065
     Dates: start: 20190729
  10. ROACTEMRA [Suspect]
     Active Substance: TOCILIZUMAB
     Indication: TEMPORAL ARTERITIS
     Dosage: 20 MG/ML
     Route: 065
     Dates: start: 20190903
  11. ALDACTONE [Concomitant]
     Active Substance: SPIRONOLACTONE
     Dosage: 1 MANE
     Route: 065
     Dates: start: 20190910
  12. ALLOPURINOL. [Concomitant]
     Active Substance: ALLOPURINOL
     Dosage: 1 MANE
     Route: 065
     Dates: start: 20190408
  13. THEALOZ DUO [Concomitant]
     Active Substance: HYALURONATE SODIUM\TREHALOSE
     Dosage: INTO BOTH EYES IF REQUIRED
     Route: 065
     Dates: start: 20190408
  14. ZANIDIP [Concomitant]
     Active Substance: LERCANIDIPINE HYDROCHLORIDE
     Dosage: 2 MANE
     Route: 065
     Dates: start: 20190408
  15. LEXOTAN [Concomitant]
     Active Substance: BROMAZEPAM
     Dosage: 1 NOCTE PRN
     Route: 065
     Dates: start: 20190408

REACTIONS (8)
  - Hepatic cirrhosis [Fatal]
  - Fibrosis [Fatal]
  - Shock [Fatal]
  - Aortic valve disease [Fatal]
  - Left ventricular hypertrophy [Fatal]
  - Pneumonia [Fatal]
  - Sepsis [Fatal]
  - Intestinal infarction [Fatal]

NARRATIVE: CASE EVENT DATE: 20190913
